FAERS Safety Report 6178978-8 (Version None)
Quarter: 2009Q2

REPORT INFORMATION
  Report Type: 
  Country: None (occurrence: None)
  Receive Date: 20090505
  Receipt Date: 20090423
  Transmission Date: 20091009
  Serious: Yes (Disabling)
  Sender: FDA-Public Use
  Company Number: GB-ASTRAZENECA-2009GB00958

PATIENT
  Age: 69 Year
  Sex: Male

DRUGS (8)
  1. CRESTOR [Suspect]
     Indication: ANGINA PECTORIS
     Dosage: 5 MG
     Route: 048
     Dates: start: 20090218, end: 20090219
  2. CRESTOR [Suspect]
     Indication: HYPERCHOLESTEROLAEMIA
     Dosage: 5 MG
     Route: 048
     Dates: start: 20090218, end: 20090219
  3. FOLIC ACID [Concomitant]
     Indication: RHEUMATOID ARTHRITIS
     Dosage: DF
     Route: 048
  4. LEVOTHYROXINE SODIUM [Concomitant]
     Indication: HYPOTHYROIDISM
     Route: 048
     Dates: start: 20020101
  5. METHOTREXATE [Concomitant]
     Indication: RHEUMATOID ARTHRITIS
     Dosage: 15 MG
     Route: 048
  6. NAPROXEN [Concomitant]
     Indication: RHEUMATOID ARTHRITIS
     Dosage: 500 MG
  7. PLAVIX [Concomitant]
     Indication: ANGINA PECTORIS
     Dosage: 75 MG
     Route: 048
  8. RANITIDINE [Concomitant]
     Indication: DYSPEPSIA
     Dosage: 100 MG
     Route: 048

REACTIONS (1)
  - VISION BLURRED [None]
